FAERS Safety Report 17688713 (Version 3)
Quarter: 2021Q1

REPORT INFORMATION
  Report Type: Report from Study
  Country: CO (occurrence: CO)
  Receive Date: 20200421
  Receipt Date: 20210119
  Transmission Date: 20210419
  Serious: Yes (Hospitalization, Other)
  Sender: FDA-Public Use
  Company Number: CO-JNJFOC-20200415410

PATIENT
  Age: 41 Year
  Sex: Female
  Weight: 65 kg

DRUGS (4)
  1. SIMPONI [Suspect]
     Active Substance: GOLIMUMAB
     Indication: ANKYLOSING SPONDYLITIS
     Route: 058
     Dates: start: 20180529, end: 20180911
  2. SIMPONI [Suspect]
     Active Substance: GOLIMUMAB
     Route: 058
     Dates: start: 20190122
  3. SIMPONI [Suspect]
     Active Substance: GOLIMUMAB
     Route: 058
     Dates: start: 20191023, end: 20191227
  4. SIMPONI [Suspect]
     Active Substance: GOLIMUMAB
     Route: 058
     Dates: start: 20200120

REACTIONS (7)
  - Gastritis bacterial [Not Recovered/Not Resolved]
  - Weight decreased [Unknown]
  - Decreased immune responsiveness [Recovering/Resolving]
  - Anaemia [Recovering/Resolving]
  - Platelet count decreased [Recovering/Resolving]
  - Urinary tract infection [Recovering/Resolving]
  - Diarrhoea [Recovering/Resolving]

NARRATIVE: CASE EVENT DATE: 2020
